FAERS Safety Report 7226421-X (Version None)
Quarter: 2011Q1

REPORT INFORMATION
  Report Type: 
  Country: None (occurrence: None)
  Receive Date: 20110105
  Receipt Date: 20101221
  Transmission Date: 20110831
  Serious: Yes (Hospitalization)
  Sender: FDA-Public Use
  Company Number: 2010-4286

PATIENT
  Age: 9 Year
  Sex: Female
  Weight: 34.4 kg

DRUGS (5)
  1. CORTEF [Concomitant]
  2. IBUPROFEN [Concomitant]
  3. INCRELEX [Suspect]
     Indication: PRODUCT USED FOR UNKNOWN INDICATION
     Dosage: 60 UNITS (60 UNITS, 1 IN 1 D), SUBCUTANEOUS
     Route: 058
     Dates: start: 20081201, end: 20101129
  4. SYNTHROID [Concomitant]
  5. NUTROPIN AQ (NUTROPIN) (SOMATROPIN) (SOMATROPIN) [Concomitant]

REACTIONS (2)
  - HYDROCEPHALUS [None]
  - CEREBRAL VENTRICLE DILATATION [None]
